FAERS Safety Report 4302576-1 (Version None)
Quarter: 2004Q1

REPORT INFORMATION
  Report Type: 
  Country: None (occurrence: None)
  Receive Date: 20040224
  Receipt Date: 20040218
  Transmission Date: 20041129
  Serious: Yes (Hospitalization)
  Sender: FDA-Public Use
  Company Number: 200412265GDDC

PATIENT
  Age: 68 Year
  Sex: Female

DRUGS (8)
  1. MINIRIN [Suspect]
     Indication: POLYURIA
     Route: 048
     Dates: start: 20040120
  2. HYDROCHLOROTHIAZIDE [Suspect]
     Route: 048
     Dates: start: 20010130
  3. RAMIPRIL [Concomitant]
     Route: 048
  4. ACENOCOUMAROL [Concomitant]
     Indication: THROMBOSIS PROPHYLAXIS
     Dosage: DOSE: UNK
     Route: 048
  5. SOTALOL HCL [Concomitant]
     Dosage: DOSE: UNK
  6. FLECAINIDE ACETATE [Concomitant]
     Route: 048
  7. METAMUCIL ^PROCTER + GAMBLE^ [Concomitant]
     Route: 048
     Dates: start: 20040111
  8. SYMBICORT TURBUHALER ^ASTRAZENECA^ [Concomitant]
     Route: 055

REACTIONS (2)
  - HYPONATRAEMIA [None]
  - VOMITING [None]
